FAERS Safety Report 7373693-7 (Version None)
Quarter: 2011Q1

REPORT INFORMATION
  Report Type: 
  Country: None (occurrence: None)
  Receive Date: 20110325
  Receipt Date: 20091120
  Transmission Date: 20110831
  Serious: Yes (Other)
  Sender: FDA-Public Use
  Company Number: US-BAYER-200940878NA

PATIENT
  Sex: Male
  Weight: 88.435 kg

DRUGS (35)
  1. TRASYLOL [Suspect]
  2. ACETAMINOPHEN [Concomitant]
     Dosage: AS NEEDED
     Route: 048
  3. LISINOPRIL [Concomitant]
     Dosage: 5 MG, UNK
     Route: 048
  4. CELEXA [Concomitant]
     Dosage: 20 MG, DAILY
     Route: 048
  5. PILOCARPINE [Concomitant]
     Dosage: 4% 1 DROP TWICE A DAY
     Route: 047
  6. VYTORIN [Suspect]
     Dosage: 10/40 1 TAB DAILY
     Route: 048
  7. PRECEDEX [Suspect]
     Dosage: 3.2 MG, UNK
     Dates: start: 20060621, end: 20060621
  8. ANCEF [Concomitant]
     Dosage: 3 G, UNK
     Route: 042
     Dates: start: 20060621, end: 20060621
  9. CELEBREX [Concomitant]
     Dosage: 200 MG, DAILY
     Route: 048
  10. NEURONTIN [Concomitant]
     Dosage: 300MG 2 TABS 4 TIMES A DAY
     Route: 048
  11. MULTI-VITAMIN [Concomitant]
     Dosage: 1 TABLET DAILY
     Route: 048
  12. VESICARE [Concomitant]
     Dosage: 6 MG, QD
     Route: 048
  13. HEPARIN [Concomitant]
     Dosage: 44000 U, UNK
     Route: 042
     Dates: start: 20060621, end: 20060621
  14. IBUPROFEN [Concomitant]
     Route: 048
  15. TIMOPTIC [Concomitant]
     Dosage: 0.5% 1 DROP DAILY
     Route: 047
  16. FENTANYL [Concomitant]
     Dosage: 50 MCG
     Route: 042
     Dates: start: 20060621, end: 20060621
  17. TRASYLOL [Suspect]
     Indication: AORTIC VALVE DISEASE
     Dosage: 50 ML/HR
     Dates: start: 20060621, end: 20060621
  18. METOPROLOL [Concomitant]
     Dosage: 10 MG, UNK
     Route: 042
     Dates: start: 20060621, end: 20060621
  19. ALEVE [Concomitant]
     Route: 048
  20. TRAVOPROST [Concomitant]
     Dosage: 0.004% 1 DROP DAILY
     Route: 047
  21. WARFARIN SODIUM [Concomitant]
     Dosage: 7.5 MG, QD
     Route: 048
  22. DILAUDID [Concomitant]
     Dosage: 2 MG, UNK
     Route: 042
     Dates: start: 20060621, end: 20060621
  23. HEPARIN [Concomitant]
     Dosage: 10 UNK, CARDIOPULAMONARY BYPASS
     Dates: start: 20060621, end: 20060621
  24. MANNITOL [Concomitant]
     Dosage: 50 UNK, UNK
     Dates: start: 20060621, end: 20060621
  25. TRASYLOL [Suspect]
     Indication: CORONARY ARTERY BYPASS
     Dosage: 200 ML, UNK
     Dates: start: 20060621, end: 20060621
  26. NUROFEN [Concomitant]
     Route: 048
  27. MOTRIN [Concomitant]
     Route: 048
  28. LASIX [Concomitant]
     Dosage: 20MG DAILY
     Route: 048
  29. VICODIN [Concomitant]
     Dosage: 5/500 FOUR TIMES A DAY AS NEEDED
     Route: 048
  30. INSULIN [Concomitant]
     Indication: DIABETES MELLITUS
     Dosage: 5.5 U, UNK
     Route: 042
     Dates: start: 20060621, end: 20060621
  31. DOBUTAMINE [Concomitant]
     Dosage: UN10 UNK,UNK
     Route: 042
     Dates: start: 20060621
  32. ALPHAGAN [Concomitant]
     Dosage: 0.2% 1 GTT
  33. FLECTOR [Concomitant]
     Dosage: 1.3% TOPICAL AS NEEDED
     Route: 061
  34. NIASPAN [Concomitant]
     Dosage: 1 TAB DAILY
     Route: 048
  35. NEO-SYNEPHRINOL [Suspect]
     Dosage: UNK
     Route: 042
     Dates: start: 20060621

REACTIONS (11)
  - RENAL INJURY [None]
  - RENAL FAILURE [None]
  - UNEVALUABLE EVENT [None]
  - FEAR [None]
  - PAIN [None]
  - DISABILITY [None]
  - ANXIETY [None]
  - MULTI-ORGAN FAILURE [None]
  - DEPRESSION [None]
  - INJURY [None]
  - ANHEDONIA [None]
